FAERS Safety Report 4347420-1 (Version None)
Quarter: 2004Q2

REPORT INFORMATION
  Report Type: 
  Country: None (occurrence: None)
  Receive Date: 20040422
  Receipt Date: 20030522
  Transmission Date: 20050107
  Serious: Yes (Hospitalization, Other)
  Sender: FDA-Public Use
  Company Number: 2003017901

PATIENT
  Sex: Female

DRUGS (4)
  1. VIRACEPT [Suspect]
     Indication: HIV INFECTION
     Dates: start: 20020528
  2. ZIDOVUDINE [Suspect]
     Indication: HIV INFECTION
     Dates: start: 20020528
  3. ZIDOVUDINE [Suspect]
     Indication: PROPHYLAXIS AGAINST HIV INFECTION
     Dosage: INTRAVENOUS
     Route: 042
  4. NICARDIPINE HCL [Concomitant]

REACTIONS (6)
  - CAESAREAN SECTION [None]
  - COMPLICATIONS OF MATERNAL EXPOSURE TO THERAPEUTIC DRUGS [None]
  - CONGENITAL ANOMALY [None]
  - MATERNAL DRUGS AFFECTING FOETUS [None]
  - PREMATURE BABY [None]
  - PREMATURE LABOUR [None]
